FAERS Safety Report 6267048-6 (Version None)
Quarter: 2009Q3

REPORT INFORMATION
  Report Type: 
  Country: None (occurrence: None)
  Receive Date: 20090714
  Receipt Date: 20090420
  Transmission Date: 20100115
  Serious: No
  Sender: FDA-Public Use
  Company Number: US-BAYER-200918015NA

PATIENT
  Age: 63 Year
  Sex: Female
  Weight: 60 kg

DRUGS (2)
  1. CLIMARA PRO [Suspect]
     Indication: MENOPAUSAL SYMPTOMS
     Dosage: 0.045/0.015 MG CONTINUOUS DELIVERY FOR ONCE WEEKLY APPLICATION
     Route: 062
     Dates: end: 20090401
  2. CLIMARA PRO [Suspect]
     Dosage: 0.045/0.015MG CONTINUOUS DELIVERY FOR ONCE WEEKLY APPLICATION
     Route: 062
     Dates: start: 20090401

REACTIONS (3)
  - ABDOMINAL PAIN LOWER [None]
  - BLADDER DISCOMFORT [None]
  - POLLAKIURIA [None]
